FAERS Safety Report 6852043-6 (Version None)
Quarter: 2010Q3

REPORT INFORMATION
  Report Type: 
  Country: None (occurrence: None)
  Receive Date: 20100717
  Receipt Date: 20071106
  Transmission Date: 20110219
  Serious: No
  Sender: FDA-Public Use
  Company Number: US-PFIZER INC-2007095206

PATIENT
  Sex: Female

DRUGS (3)
  1. CHANTIX [Suspect]
     Indication: SMOKING CESSATION THERAPY
     Route: 048
     Dates: start: 20071001, end: 20071104
  2. PAXIL [Concomitant]
     Dates: end: 20071001
  3. SYNTHROID [Concomitant]
     Indication: HYPOTHYROIDISM

REACTIONS (5)
  - ABDOMINAL DISTENSION [None]
  - DIARRHOEA [None]
  - DIZZINESS [None]
  - FLATULENCE [None]
  - WEIGHT INCREASED [None]
